FAERS Safety Report 13220447 (Version 1)
Quarter: 2017Q1

REPORT INFORMATION
  Report Type: Spontaneous
  Country: JP (occurrence: JP)
  Receive Date: 20170210
  Receipt Date: 20170210
  Transmission Date: 20170428
  Serious: Yes (Other)
  Sender: FDA-Public Use
  Company Number: JP-JNJFOC-20170207895

PATIENT

DRUGS (5)
  1. DOXORUBICIN HYDROCHLORIDE. [Suspect]
     Active Substance: DOXORUBICIN HYDROCHLORIDE
     Indication: PERIPHERAL T-CELL LYMPHOMA UNSPECIFIED
     Dosage: CONTINUOUS INFUSION ON DAYS 1 TO 4
     Route: 065
  2. CYCLOPHOSPHAMIDE. [Suspect]
     Active Substance: CYCLOPHOSPHAMIDE
     Indication: PERIPHERAL T-CELL LYMPHOMA UNSPECIFIED
     Dosage: ON DAY 5
     Route: 065
  3. PREDNISONE. [Suspect]
     Active Substance: PREDNISONE
     Indication: PERIPHERAL T-CELL LYMPHOMA UNSPECIFIED
     Dosage: ON DAYS 1 TO 5
     Route: 065
  4. ETOPOSIDE. [Suspect]
     Active Substance: ETOPOSIDE
     Indication: PERIPHERAL T-CELL LYMPHOMA UNSPECIFIED
     Dosage: CONTINUOUS INFUSION ON DAYS 1 TO 4
     Route: 065
  5. VINCRISTINE [Suspect]
     Active Substance: VINCRISTINE
     Indication: PERIPHERAL T-CELL LYMPHOMA UNSPECIFIED
     Dosage: CONTINUOUS INFUSION ON DAYS 1 TO 4
     Route: 065

REACTIONS (10)
  - Anaemia [Unknown]
  - Off label use [Unknown]
  - Infection [Unknown]
  - Neutropenia [Unknown]
  - Febrile neutropenia [Unknown]
  - Product use issue [Unknown]
  - Thrombocytopenia [Unknown]
  - Nephropathy toxic [Unknown]
  - Hepatotoxicity [Unknown]
  - Gastrointestinal toxicity [Unknown]
